FAERS Safety Report 8193409-4 (Version None)
Quarter: 2012Q1

REPORT INFORMATION
  Report Type: 
  Country: None (occurrence: None)
  Receive Date: 20120308
  Receipt Date: 20120227
  Transmission Date: 20120608
  Serious: Yes (Other)
  Sender: FDA-Public Use
  Company Number: CA-JNJFOC-20120214301

PATIENT
  Sex: Female
  Weight: 111 kg

DRUGS (4)
  1. REMICADE [Suspect]
     Indication: COLITIS ULCERATIVE
     Route: 042
     Dates: start: 20110214
  2. REMICADE [Suspect]
     Dosage: 10TH INFUSION
     Route: 042
     Dates: start: 20120116
  3. IMURAN [Concomitant]
     Route: 048
  4. ALL OTHER THERAPEUTIC PRODUCTS [Concomitant]
     Route: 065

REACTIONS (3)
  - MIGRAINE [None]
  - PHARYNGITIS STREPTOCOCCAL [None]
  - BLOOD PRESSURE INCREASED [None]
